FAERS Safety Report 10447345 (Version 4)
Quarter: 2014Q3

REPORT INFORMATION
  Report Type: Report from Study
  Country: US (occurrence: US)
  Receive Date: 20140911
  Receipt Date: 20140923
  Transmission Date: 20150326
  Serious: Yes (Life-Threatening, Hospitalization, Other)
  Sender: FDA-Public Use
  Company Number: US-MERCK-1407USA007768

PATIENT
  Age: 61 Year
  Sex: Female
  Weight: 89.81 kg

DRUGS (12)
  1. RIBAVIRIN. [Suspect]
     Active Substance: RIBAVIRIN
     Indication: CHRONIC HEPATITIS C
     Dosage: 3 CAPSULE, BID
     Route: 048
     Dates: start: 20140519, end: 20140709
  2. MK-5172 [Suspect]
     Active Substance: GRAZOPREVIR ANHYDROUS
     Indication: CHRONIC HEPATITIS C
     Dosage: 1 TABLET, QD
     Route: 048
     Dates: start: 20140519, end: 20140708
  3. KLONOPIN [Concomitant]
     Active Substance: CLONAZEPAM
     Indication: ANXIETY
     Dosage: TOTAL DAILY DOSE 1.5 (UNIT UNKNOWN), TID, STRENGTH:0.5  (UNIT NOR PROVIDED)
     Route: 048
     Dates: start: 200405
  4. MK-5172 [Suspect]
     Active Substance: GRAZOPREVIR ANHYDROUS
     Dosage: 1 TABLET, QD
     Route: 048
     Dates: start: 20140711, end: 20140711
  5. MK-8742 [Suspect]
     Active Substance: ELBASVIR
     Dosage: UNK
     Route: 048
     Dates: start: 20140711, end: 20140711
  6. RIBAVIRIN. [Suspect]
     Active Substance: RIBAVIRIN
     Dosage: 3 CAPSULE, ONCE
     Route: 048
     Dates: start: 20140711, end: 20140711
  7. NORVASC [Concomitant]
     Active Substance: AMLODIPINE BESYLATE
     Indication: HYPERTENSION
     Dosage: TOTAL DAILY DOSE 10 (UNIT UNKNOWN), BID, STRENGTH:5  (UNIT NOR PROVIDED)
     Route: 048
     Dates: start: 200405
  8. HYDROCHLOROTHIAZIDE. [Concomitant]
     Active Substance: HYDROCHLOROTHIAZIDE
     Indication: HYPERTENSION
     Dosage: UNK
     Route: 048
     Dates: start: 20140520
  9. DICLOFENAC [Concomitant]
     Active Substance: DICLOFENAC
     Indication: ARTHRALGIA
     Dosage: UNK, QD
     Route: 048
     Dates: start: 200405
  10. ZOLOFT [Concomitant]
     Active Substance: SERTRALINE HYDROCHLORIDE
     Indication: DEPRESSION
     Dosage: TOTAL DAILY DOSE 150 (UNIT KNOWN), TID, STRENGTH: 50  (UNIT NOR PROVIDED)
     Route: 048
     Dates: start: 20140603
  11. MK-8742 [Suspect]
     Active Substance: ELBASVIR
     Indication: CHRONIC HEPATITIS C
     Dosage: UNK
     Route: 048
     Dates: start: 20140519, end: 20140708
  12. METOPROLOL [Concomitant]
     Active Substance: METOPROLOL
     Indication: PALPITATIONS
     Dosage: TOTAL DAILY DOSE 25 (UNIT UNKNOWN), QD, STRENGTH: 25  (UNIT NOR PROVIDED)
     Route: 048
     Dates: start: 200405

REACTIONS (3)
  - Cholangitis [Recovered/Resolved]
  - Abdominal pain [Recovered/Resolved]
  - Bacteraemia [Recovered/Resolved]

NARRATIVE: CASE EVENT DATE: 20140707
